FAERS Safety Report 8871394 (Version 1)
Quarter: 2012Q4

REPORT INFORMATION
  Report Type: 
  Country: DE (occurrence: DE)
  Receive Date: 20121029
  Receipt Date: 20121029
  Transmission Date: 20130627
  Serious: Yes (Life-Threatening, Hospitalization)
  Sender: FDA-Public Use
  Company Number: DE-BRISTOL-MYERS SQUIBB COMPANY-16861510

PATIENT
  Age: 78 Year
  Sex: Male
  Weight: 85 kg

DRUGS (6)
  1. YERVOY [Suspect]
     Indication: METASTATIC MALIGNANT MELANOMA
     Dosage: No of dose: 2
     Route: 042
     Dates: start: 20120620
  2. ZOMETA [Concomitant]
     Indication: AORTIC VALVE STENOSIS
     Route: 042
     Dates: start: 20120306
  3. BISPHOSPHONATES [Concomitant]
     Dates: start: 20120320
  4. DACARBAZINE [Concomitant]
     Dates: start: 20120214
  5. TRAMADOL [Concomitant]
     Dates: start: 20120329
  6. ARCOXIA [Concomitant]
     Dates: start: 20120329

REACTIONS (3)
  - Atrial fibrillation [Recovering/Resolving]
  - Colitis [Recovered/Resolved]
  - Diarrhoea [Recovered/Resolved]
